FAERS Safety Report 8005940-2 (Version None)
Quarter: 2011Q4

REPORT INFORMATION
  Report Type: 
  Country: None (occurrence: None)
  Receive Date: 20111223
  Receipt Date: 20111214
  Transmission Date: 20120403
  Serious: Yes (Hospitalization)
  Sender: FDA-Public Use
  Company Number: JP-ASTRAZENECA-2011SE70210

PATIENT
  Sex: Female

DRUGS (7)
  1. CANDESARTAN CILEXETIL [Concomitant]
     Indication: HYPERTENSION
     Route: 048
  2. ONEALFA [Concomitant]
     Indication: OSTEOPOROSIS
     Route: 048
  3. ARICEPT [Concomitant]
     Indication: DEMENTIA WITH LEWY BODIES
     Route: 048
  4. ALDACTONE [Concomitant]
     Indication: HYPERTENSION
     Route: 048
  5. SEROQUEL [Suspect]
     Indication: DEMENTIA WITH LEWY BODIES
     Route: 048
     Dates: start: 20090605, end: 20091031
  6. SEROQUEL [Suspect]
     Route: 048
     Dates: start: 20091128, end: 20091204
  7. SEROQUEL [Suspect]
     Route: 048
     Dates: start: 20091101, end: 20091127

REACTIONS (4)
  - HYPERKINESIA [None]
  - RESTLESSNESS [None]
  - OFF LABEL USE [None]
  - AGITATION [None]
